FAERS Safety Report 8443314-0 (Version None)
Quarter: 2012Q2

REPORT INFORMATION
  Report Type: 
  Country: None (occurrence: None)
  Receive Date: 20120618
  Receipt Date: 20120530
  Transmission Date: 20120825
  Serious: No
  Sender: FDA-Public Use
  Company Number: US-ASTRAZENECA-2011SE41580

PATIENT
  Age: 24698 Day
  Sex: Male
  Weight: 84.4 kg

DRUGS (5)
  1. LITMIUM [Concomitant]
  2. NEXIUM [Suspect]
     Indication: GASTROOESOPHAGEAL REFLUX DISEASE
     Dosage: ONCE A DAY
     Route: 048
     Dates: start: 20060101, end: 20110701
  3. NEXIUM [Suspect]
     Route: 048
     Dates: start: 20070101, end: 20120101
  4. FINASTERIDE [Concomitant]
  5. CALCIUM CARBONATE [Concomitant]
     Indication: DYSPEPSIA

REACTIONS (4)
  - FIBULA FRACTURE [None]
  - OSTEOPOROSIS [None]
  - PANIC ATTACK [None]
  - TIBIA FRACTURE [None]
